FAERS Safety Report 9743968 (Version 1)
Quarter: 2013Q4

REPORT INFORMATION
  Report Type: Spontaneous
  Country: US (occurrence: US)
  Receive Date: 20131210
  Receipt Date: 20131210
  Transmission Date: 20140711
  Serious: Yes (Hospitalization)
  Sender: FDA-Public Use
  Company Number: US-PFIZER INC-2013350023

PATIENT
  Age: 44 Year
  Sex: Female

DRUGS (1)
  1. VFEND [Suspect]
     Indication: ACUTE MYELOID LEUKAEMIA
     Dosage: 300 MG, 2X/DAY
     Dates: start: 20131105

REACTIONS (1)
  - Leukaemia [Unknown]
